FAERS Safety Report 23101241 (Version 1)
Quarter: 2023Q4

REPORT INFORMATION
  Report Type: Spontaneous
  Country: None (occurrence: US)
  Receive Date: 20231024
  Receipt Date: 20231024
  Transmission Date: 20240109
  Serious: Yes (Other)
  Sender: FDA-Public Use
  Company Number: US-B.Braun Medical Inc.-2147424

PATIENT

DRUGS (1)
  1. HEPARIN SODIUM IN SODIUM CHLORIDE [Suspect]
     Active Substance: HEPARIN SODIUM

REACTIONS (1)
  - Blood test abnormal [None]
